FAERS Safety Report 6094322-9 (Version None)
Quarter: 2009Q1

REPORT INFORMATION
  Report Type: 
  Country: None (occurrence: None)
  Receive Date: 20090226
  Receipt Date: 20090223
  Transmission Date: 20090719
  Serious: Yes (Death, Other)
  Sender: FDA-Public Use
  Company Number: US-CELGENEUS-163-21880-08071069

PATIENT
  Sex: Male

DRUGS (2)
  1. REVLIMID [Suspect]
     Route: 048
     Dates: start: 20080609, end: 20080708
  2. REVLIMID [Suspect]
     Route: 048
     Dates: start: 20080312, end: 20080601

REACTIONS (3)
  - ATRIAL FIBRILLATION [None]
  - NEUTROPENIA [None]
  - STAPHYLOCOCCAL SEPSIS [None]
